FAERS Safety Report 23347687 (Version 1)
Quarter: 2023Q4

REPORT INFORMATION
  Report Type: Spontaneous
  Country: CA (occurrence: CA)
  Receive Date: 20231228
  Receipt Date: 20231228
  Transmission Date: 20240109
  Serious: Yes (Hospitalization)
  Sender: FDA-Public Use
  Company Number: CA-FreseniusKabi-FK202320966

PATIENT
  Age: 59 Year
  Sex: Female

DRUGS (8)
  1. MORPHINE SULFATE [Suspect]
     Active Substance: MORPHINE SULFATE
     Indication: Cancer pain
     Dosage: FORM: NOT SPECIFIED?ROUTE: SUBCUTANEOUS
  2. DEXAMETHASONE [Suspect]
     Active Substance: DEXAMETHASONE
     Indication: Cancer pain
     Dosage: FORM: NOT SPECIFIED?ROA: UNKNOWN
  3. DIAZEPAM [Suspect]
     Active Substance: DIAZEPAM
     Indication: Cancer pain
     Dosage: FORM: NOT SPECIFIED?ROA: UNKNOWN
  4. GABAPENTIN [Suspect]
     Active Substance: GABAPENTIN
     Indication: Cancer pain
     Dosage: FORM: NOT SPECIFIED?ROA: UNKNOWN
  5. GABAPENTIN [Suspect]
     Active Substance: GABAPENTIN
     Dosage: FORM: NOT SPECIFIED?ROA: UNKNOWN
  6. METHADONE [Suspect]
     Active Substance: METHADONE HYDROCHLORIDE
     Indication: Cancer pain
     Dosage: FORM: NOT SPECIFIED?ROA: UNKNOWN
  7. METHADONE [Suspect]
     Active Substance: METHADONE HYDROCHLORIDE
     Dosage: FORM: NOT SPECIFIED?ROA: UNKNOWN
  8. METHADONE [Suspect]
     Active Substance: METHADONE HYDROCHLORIDE
     Dosage: FORM: NOT SPECIFIED?ROA: UNKNOWN

REACTIONS (3)
  - Drug ineffective [Unknown]
  - No adverse event [Unknown]
  - Off label use [Unknown]
